FAERS Safety Report 7867905-0 (Version None)
Quarter: 2011Q4

REPORT INFORMATION
  Report Type: 
  Country: None (occurrence: None)
  Receive Date: 20111028
  Receipt Date: 20111018
  Transmission Date: 20120403
  Serious: Yes (Other)
  Sender: FDA-Public Use
  Company Number: PHHY2011US92364

PATIENT
  Age: 50 Year
  Sex: Female

DRUGS (1)
  1. KETOROLAC TROMETHAMINE [Suspect]
     Indication: RENAL COLIC
     Dosage: 60 MG, UNK
     Route: 030

REACTIONS (13)
  - HYPOTENSION [None]
  - TACHYPNOEA [None]
  - HEPATIC FUNCTION ABNORMAL [None]
  - BLISTER [None]
  - PURPURA [None]
  - TACHYCARDIA [None]
  - NECROSIS [None]
  - PURPURA FULMINANS [None]
  - DISSEMINATED INTRAVASCULAR COAGULATION [None]
  - HAEMORRHAGE [None]
  - RENAL FAILURE ACUTE [None]
  - RASH [None]
  - ECCHYMOSIS [None]
